FAERS Safety Report 4337459-4 (Version None)
Quarter: 2004Q2

REPORT INFORMATION
  Report Type: 
  Country: None (occurrence: None)
  Receive Date: 20040408
  Receipt Date: 20040323
  Transmission Date: 20050107
  Serious: Yes (Other)
  Sender: FDA-Public Use
  Company Number: UK070260

PATIENT
  Sex: Male

DRUGS (3)
  1. NEUPOGEN [Suspect]
     Indication: PRE-EXISTING DISEASE
     Dosage: 10 MCG/KG, 2 IN 1 DAY, SC
     Route: 058
     Dates: start: 20030221, end: 20030223
  2. CLOPIDOGREL [Concomitant]
  3. TIROFIBAN [Concomitant]

REACTIONS (2)
  - CORONARY ARTERY RESTENOSIS [None]
  - STENT OCCLUSION [None]
